FAERS Safety Report 16692504 (Version 2)
Quarter: 2019Q3

REPORT INFORMATION
  Report Type: Spontaneous
  Country: US (occurrence: US)
  Receive Date: 20190812
  Receipt Date: 20190906
  Transmission Date: 20191004
  Serious: Yes (Life-Threatening, Other)
  Sender: FDA-Public Use
  Company Number: US-009507513-1908USA002483

PATIENT
  Age: 65 Year
  Sex: Female

DRUGS (5)
  1. PROVENTIL [Suspect]
     Active Substance: ALBUTEROL
     Dosage: UNK, TAKEN WHEN NEED (PRN)
     Dates: start: 20190727
  2. PROVENTIL [Suspect]
     Active Substance: ALBUTEROL
     Dosage: UNK, TAKEN WHEN NEED (PRN)
     Dates: start: 2019
  3. PROVENTIL [Suspect]
     Active Substance: ALBUTEROL
     Dosage: UNK, TAKEN WHEN NEED (PRN)
     Dates: start: 20190727
  4. PROVENTIL [Suspect]
     Active Substance: ALBUTEROL
     Dosage: UNK, TAKEN WHEN NEED (PRN)
     Dates: start: 20190727
  5. PROVENTIL [Suspect]
     Active Substance: ALBUTEROL
     Indication: ASTHMA
     Dosage: UNK, TAKEN WHEN NEED (PRN)

REACTIONS (7)
  - Deafness [Unknown]
  - Poor quality device used [Unknown]
  - Expired product administered [Unknown]
  - Product quality issue [Unknown]
  - Blood pressure abnormal [Unknown]
  - Tooth infection [Unknown]
  - Product quality issue [Unknown]

NARRATIVE: CASE EVENT DATE: 20190727
